FAERS Safety Report 14303641 (Version 1)
Quarter: 2017Q4

REPORT INFORMATION
  Report Type: Spontaneous
  Country: JP (occurrence: JP)
  Receive Date: 20171219
  Receipt Date: 20171219
  Transmission Date: 20180321
  Serious: Yes (Other)
  Sender: FDA-Public Use
  Company Number: JP-OTSUKA-2016_028041

PATIENT
  Sex: Female

DRUGS (2)
  1. ABILIFY [Suspect]
     Active Substance: ARIPIPRAZOLE
     Indication: SCHIZOPHRENIA
     Dosage: 24 MG, UNK
     Route: 048
  2. ABILIFY [Suspect]
     Active Substance: ARIPIPRAZOLE
     Dosage: 18 MG, UNK
     Route: 048

REACTIONS (7)
  - Abdominal pain upper [Unknown]
  - Headache [Unknown]
  - Lid sulcus deepened [Unknown]
  - Nausea [Unknown]
  - Pyrexia [Unknown]
  - Bone atrophy [Unknown]
  - Syncope [Unknown]
